FAERS Safety Report 21460674 (Version 3)
Quarter: 2022Q4

REPORT INFORMATION
  Report Type: Spontaneous
  Country: FR (occurrence: FR)
  Receive Date: 20221015
  Receipt Date: 20221107
  Transmission Date: 20230113
  Serious: Yes (Other)
  Sender: FDA-Public Use
  Company Number: FR-AFSSAPS-MA20224048

PATIENT
  Age: 76 Year
  Sex: Female

DRUGS (6)
  1. ESCITALOPRAM [Suspect]
     Active Substance: ESCITALOPRAM OXALATE
     Indication: Depression
     Dosage: 5 MILLIGRAM
     Route: 048
     Dates: start: 20220308
  2. LAMOTRIGINE [Suspect]
     Active Substance: LAMOTRIGINE
     Indication: Epilepsy
     Dosage: 100 MILLIGRAM
     Route: 048
     Dates: start: 20220308
  3. AZACTAM [Suspect]
     Active Substance: AZTREONAM
     Indication: Bacteraemia
     Dosage: 1 GRAM, 3 TIMES A DAY
     Route: 042
     Dates: start: 20220310, end: 20220314
  4. TEGRETOL [Suspect]
     Active Substance: CARBAMAZEPINE
     Indication: Epilepsy
     Dosage: 700 MILLIGRAM (300MG IN THE MORNING 400MG IN THE EVENING)
     Route: 048
     Dates: start: 20220307
  5. TEGRETOL [Suspect]
     Active Substance: CARBAMAZEPINE
     Indication: Neuralgia
     Dosage: 1400 MILLIGRAM, ONCE A DAY, (700 MG, BID (300 MG IN THE MORNING 400 MG IN THE EVENING) )
     Route: 048
     Dates: start: 20220307
  6. AUGMENTIN [Concomitant]
     Active Substance: AMOXICILLIN\CLAVULANATE POTASSIUM
     Indication: Pneumonia aspiration
     Dosage: 1 GRAM, 3 TIMES A DAY
     Route: 048
     Dates: start: 20220308, end: 20220310

REACTIONS (1)
  - Neutropenia [Unknown]

NARRATIVE: CASE EVENT DATE: 20220311
